FAERS Safety Report 16289051 (Version 2)
Quarter: 2021Q1

REPORT INFORMATION
  Report Type: Spontaneous
  Country: US (occurrence: US)
  Receive Date: 20190509
  Receipt Date: 20210226
  Transmission Date: 20210419
  Serious: Yes (Death, Other)
  Sender: FDA-Public Use
  Company Number: US-ASTRAZENECA-2019SE63468

PATIENT
  Sex: Male

DRUGS (54)
  1. PREVACID [Suspect]
     Active Substance: LANSOPRAZOLE
     Indication: GASTROOESOPHAGEAL REFLUX DISEASE
     Route: 065
     Dates: start: 1990, end: 2011
  2. HYDRALAZINE [Concomitant]
     Active Substance: HYDRALAZINE HYDROCHLORIDE
     Dates: start: 20100922, end: 20110411
  3. PEPTO?BISMOL [Concomitant]
     Active Substance: BISMUTH SUBSALICYLATE
  4. CALCITRIOL. [Concomitant]
     Active Substance: CALCITRIOL
  5. MYCOPHENOLATE [Concomitant]
     Active Substance: MYCOPHENOLIC ACID
  6. CEFDINIR. [Concomitant]
     Active Substance: CEFDINIR
  7. OXYCODONE [Concomitant]
     Active Substance: OXYCODONE
  8. NEXIUM [Suspect]
     Active Substance: ESOMEPRAZOLE MAGNESIUM
     Indication: GASTROOESOPHAGEAL REFLUX DISEASE
     Dosage: 20MG/40 MG
     Route: 048
     Dates: start: 2007, end: 2010
  9. NEXIUM [Suspect]
     Active Substance: ESOMEPRAZOLE MAGNESIUM
     Indication: GASTROOESOPHAGEAL REFLUX DISEASE
     Route: 048
     Dates: start: 20131114
  10. AMOXICILLIN. [Concomitant]
     Active Substance: AMOXICILLIN
     Indication: INFECTION
     Dates: start: 20070301, end: 20150901
  11. AMITRIPTYLINE [Concomitant]
     Active Substance: AMITRIPTYLINE
     Dates: start: 20170726
  12. TYLENOL [Concomitant]
     Active Substance: ACETAMINOPHEN
     Indication: PAIN
  13. TUMS [Concomitant]
     Active Substance: CALCIUM CARBONATE
  14. GENTAMYCIN [Concomitant]
     Active Substance: GENTAMICIN
  15. MINOXIDIL. [Concomitant]
     Active Substance: MINOXIDIL
  16. VITAMIN D2 [Concomitant]
     Active Substance: ERGOCALCIFEROL
  17. CIALIS [Concomitant]
     Active Substance: TADALAFIL
  18. TORSEMIDE. [Concomitant]
     Active Substance: TORSEMIDE
     Dates: start: 20070503, end: 20070718
  19. ENALAPRIL [Concomitant]
     Active Substance: ENALAPRIL
     Dates: start: 20110208, end: 20110808
  20. ERYTHROMYCIN. [Concomitant]
     Active Substance: ERYTHROMYCIN
     Dates: start: 20120318, end: 20121218
  21. ATORVASTATIN [Concomitant]
     Active Substance: ATORVASTATIN
     Dates: start: 20151106, end: 20171127
  22. ROLAIDS [Concomitant]
     Active Substance: CALCIUM CARBONATE\MAGNESIUM HYDROXIDE
  23. SODIUM BICARBONATE. [Concomitant]
     Active Substance: SODIUM BICARBONATE
  24. TACROLIMUS. [Concomitant]
     Active Substance: TACROLIMUS
  25. PROAIR HFA [Concomitant]
     Active Substance: ALBUTEROL SULFATE
  26. PRILOSEC OTC [Suspect]
     Active Substance: OMEPRAZOLE MAGNESIUM
     Indication: GASTROOESOPHAGEAL REFLUX DISEASE
     Route: 048
     Dates: start: 2003, end: 2014
  27. METOPROLOL. [Concomitant]
     Active Substance: METOPROLOL
  28. NEXIUM I.V. [Suspect]
     Active Substance: ESOMEPRAZOLE SODIUM
     Route: 042
  29. PROTONIX [Suspect]
     Active Substance: PANTOPRAZOLE SODIUM
     Indication: GASTROOESOPHAGEAL REFLUX DISEASE
     Route: 065
  30. HYDROCHLOROTHIAZIDE. [Concomitant]
     Active Substance: HYDROCHLOROTHIAZIDE
     Dates: start: 20070203, end: 20070424
  31. CIPROFLOXACIN. [Concomitant]
     Active Substance: CIPROFLOXACIN
     Dates: start: 20071205, end: 20160927
  32. CYCLOSPORINE. [Concomitant]
     Active Substance: CYCLOSPORINE
     Dates: start: 20070222, end: 20081020
  33. GENTAMICIN. [Concomitant]
     Active Substance: GENTAMICIN
     Dates: start: 20110419, end: 20150211
  34. MILK OF MAGNESIA [Concomitant]
     Active Substance: MAGNESIUM HYDROXIDE
  35. PREDNISONE. [Concomitant]
     Active Substance: PREDNISONE
  36. HYOSCYAMINE. [Concomitant]
     Active Substance: HYOSCYAMINE
  37. AMLODIPINE [Concomitant]
     Active Substance: AMLODIPINE BESYLATE
  38. NEXIUM [Suspect]
     Active Substance: ESOMEPRAZOLE MAGNESIUM
     Indication: GASTROOESOPHAGEAL REFLUX DISEASE
     Route: 048
  39. NEXIUM [Suspect]
     Active Substance: ESOMEPRAZOLE MAGNESIUM
     Indication: GASTROOESOPHAGEAL REFLUX DISEASE
     Route: 048
     Dates: start: 20070919
  40. NEXIUM 24HR [Suspect]
     Active Substance: ESOMEPRAZOLE MAGNESIUM
     Indication: GASTROOESOPHAGEAL REFLUX DISEASE
     Route: 048
     Dates: start: 2014
  41. DOXYCYCLINE. [Concomitant]
     Active Substance: DOXYCYCLINE
     Dates: start: 20090713, end: 20090802
  42. PEPCID [Concomitant]
     Active Substance: FAMOTIDINE
     Dates: start: 20140922, end: 20141022
  43. MYLANTA [Concomitant]
     Active Substance: ALUMINUM HYDROXIDE\DIMETHICONE\MAGNESIUM HYDROXIDE
  44. AFLURIA NOS [Concomitant]
     Active Substance: INFLUENZA VIRUS VACCINE TRIVALENT TYPE A+B AFLURIA
  45. PRILOSEC [Suspect]
     Active Substance: OMEPRAZOLE MAGNESIUM
     Indication: GASTROOESOPHAGEAL REFLUX DISEASE
     Route: 048
     Dates: start: 1990, end: 2011
  46. PRILOSEC [Suspect]
     Active Substance: OMEPRAZOLE MAGNESIUM
     Indication: GASTROOESOPHAGEAL REFLUX DISEASE
     Dosage: GENERIC
     Route: 065
     Dates: start: 2011, end: 2012
  47. SULFAMETHOXAZOLE [Concomitant]
     Active Substance: SULFAMETHOXAZOLE
     Dates: start: 20130604, end: 20150311
  48. FUROSEMIDE. [Concomitant]
     Active Substance: FUROSEMIDE
     Dates: start: 20141013, end: 20141112
  49. LEVOFLOXACIN. [Concomitant]
     Active Substance: LEVOFLOXACIN
     Dates: start: 20160815, end: 20160821
  50. LOSARTAN. [Concomitant]
     Active Substance: LOSARTAN
     Dates: start: 20160120, end: 20170821
  51. VESICARE [Concomitant]
     Active Substance: SOLIFENACIN SUCCINATE
  52. ZOLPIDEM [Concomitant]
     Active Substance: ZOLPIDEM TARTRATE
  53. TIZANIDINE. [Concomitant]
     Active Substance: TIZANIDINE
  54. DOXYCYCLINE. [Concomitant]
     Active Substance: DOXYCYCLINE

REACTIONS (3)
  - Acute kidney injury [Fatal]
  - Renal failure [Unknown]
  - Chronic kidney disease [Unknown]
